FAERS Safety Report 5199307-2 (Version None)
Quarter: 2006Q4

REPORT INFORMATION
  Report Type: 
  Country: None (occurrence: None)
  Receive Date: 20061016
  Receipt Date: 20060620
  Transmission Date: 20070319
  Serious: No
  Sender: FDA-Public Use
  Company Number: 2006SP002478

PATIENT
  Age: 80 Year
  Sex: Male

DRUGS (4)
  1. LUNESTA [Suspect]
     Indication: INSOMNIA
     Dosage: 1 MG ORAL
     Route: 048
     Dates: start: 20060619
  2. RESTORIL [Concomitant]
  3. SINEMET [Concomitant]
  4. WELLBUTRIN [Concomitant]

REACTIONS (3)
  - ABNORMAL DREAMS [None]
  - INITIAL INSOMNIA [None]
  - SOMNOLENCE [None]
